FAERS Safety Report 16232681 (Version 2)
Quarter: 2019Q2

REPORT INFORMATION
  Report Type: Spontaneous
  Country: US (occurrence: US)
  Receive Date: 20190424
  Receipt Date: 20190521
  Transmission Date: 20190711
  Serious: No
  Sender: FDA-Public Use
  Company Number: US-ASTRAZENECA-2019SE50322

PATIENT
  Age: 21406 Day
  Sex: Female
  Weight: 76.7 kg

DRUGS (3)
  1. ALBUTEROL. [Concomitant]
     Active Substance: ALBUTEROL
     Dosage: AS REQUIRED
  2. SYMBICORT [Suspect]
     Active Substance: BUDESONIDE\FORMOTEROL FUMARATE DIHYDRATE
     Indication: MULTIPLE ALLERGIES
     Dosage: PRESCRIBED 2 PUFFS TWICE DAILY AS REQUIRED
     Route: 055
     Dates: start: 2018
  3. SYMBICORT [Suspect]
     Active Substance: BUDESONIDE\FORMOTEROL FUMARATE DIHYDRATE
     Indication: ASTHMA
     Dosage: PRESCRIBED 2 PUFFS TWICE DAILY AS REQUIRED
     Route: 055
     Dates: start: 2018

REACTIONS (8)
  - Tremor [Unknown]
  - Product use in unapproved indication [Unknown]
  - Off label use [Unknown]
  - Dyspnoea [Unknown]
  - Intentional product misuse [Unknown]
  - Incorrect dose administered [Unknown]
  - Device issue [Unknown]
  - Device failure [Unknown]

NARRATIVE: CASE EVENT DATE: 20190327
